FAERS Safety Report 11701223 (Version 1)
Quarter: 2015Q4

REPORT INFORMATION
  Report Type: Report from Study
  Country: US (occurrence: US)
  Receive Date: 20151105
  Receipt Date: 20151105
  Transmission Date: 20160304
  Serious: Yes (Other)
  Sender: FDA-Public Use
  Company Number: US-PFIZER INC-2015360678

PATIENT
  Age: 14 Year
  Sex: Female

DRUGS (1)
  1. SIROLIMUS. [Suspect]
     Active Substance: SIROLIMUS
     Indication: LYMPHANGIOPATHY
     Dosage: 0.8 MG/M2, 2X/DAY

REACTIONS (1)
  - Mucosal inflammation [Recovered/Resolved]
